FAERS Safety Report 6544855-3 (Version None)
Quarter: 2010Q1

REPORT INFORMATION
  Report Type: 
  Country: None (occurrence: None)
  Receive Date: 20100121
  Receipt Date: 20100112
  Transmission Date: 20100710
  Serious: Yes (Other)
  Sender: FDA-Public Use
  Company Number: JP-PFIZER INC-2010005636

PATIENT

DRUGS (1)
  1. VFEND [Suspect]
     Route: 048
     Dates: start: 20091229, end: 20100101

REACTIONS (1)
  - RHABDOMYOLYSIS [None]
